FAERS Safety Report 6728170-0 (Version None)
Quarter: 2010Q2

REPORT INFORMATION
  Report Type: 
  Country: None (occurrence: None)
  Receive Date: 20100517
  Receipt Date: 20100513
  Transmission Date: 20101027
  Serious: Yes (Other)
  Sender: FDA-Public Use
  Company Number: A0859796A

PATIENT
  Age: 65 Year
  Sex: Male
  Weight: 102.3 kg

DRUGS (11)
  1. TOPOTECAN [Suspect]
     Dosage: 1.2MGM2 CONTINUOUS
     Route: 042
     Dates: start: 20100321
  2. VELIPARIB [Suspect]
     Indication: NEOPLASM
     Dosage: 20MG TWICE PER DAY
     Route: 048
     Dates: start: 20100319
  3. CARBOPLATIN [Suspect]
     Dosage: 120MGM2 CONTINUOUS
     Route: 042
     Dates: start: 20100321
  4. BEXAROTENE [Suspect]
  5. VANCOMYCIN [Concomitant]
  6. ZOSYN [Concomitant]
  7. MEROPENEM [Concomitant]
  8. LINEZOLID [Concomitant]
  9. CLINDAMYCIN [Concomitant]
  10. MICAFUNGIN [Concomitant]
  11. GM-CSF [Concomitant]

REACTIONS (17)
  - BLOOD CREATININE INCREASED [None]
  - BLOOD PHOSPHORUS INCREASED [None]
  - BLOOD URIC ACID INCREASED [None]
  - CONFUSIONAL STATE [None]
  - DERMATITIS EXFOLIATIVE [None]
  - EXFOLIATIVE RASH [None]
  - GENERALISED OEDEMA [None]
  - HYPERBILIRUBINAEMIA [None]
  - HYPOCALCAEMIA [None]
  - HYPONATRAEMIA [None]
  - HYPOTENSION [None]
  - HYPOTHERMIA [None]
  - MENTAL STATUS CHANGES [None]
  - OEDEMA PERIPHERAL [None]
  - PYREXIA [None]
  - RENAL FAILURE [None]
  - SEPSIS [None]
